FAERS Safety Report 4917190-4 (Version None)
Quarter: 2006Q1

REPORT INFORMATION
  Report Type: 
  Country: None (occurrence: None)
  Receive Date: 20060221
  Receipt Date: 20060216
  Transmission Date: 20060701
  Serious: Yes (Other)
  Sender: FDA-Public Use
  Company Number: 2006PK00364

PATIENT
  Age: 25519 Day
  Sex: Male
  Weight: 90 kg

DRUGS (3)
  1. MERONEM [Suspect]
     Indication: BRAIN ABSCESS
     Route: 042
     Dates: start: 20050705
  2. VALPROATE SODIUM [Interacting]
     Indication: EPILEPSY
     Route: 048
     Dates: start: 20050619
  3. EREMFAT [Interacting]
     Indication: BRAIN ABSCESS
     Route: 042
     Dates: start: 20050705, end: 20050713

REACTIONS (3)
  - ANTICONVULSANT DRUG LEVEL BELOW THERAPEUTIC [None]
  - DRUG INTERACTION [None]
  - SIMPLE PARTIAL SEIZURES [None]
